FAERS Safety Report 15593253 (Version 2)
Quarter: 2018Q4

REPORT INFORMATION
  Report Type: Report from Study
  Country: US (occurrence: US)
  Receive Date: 20181106
  Receipt Date: 20181114
  Transmission Date: 20190205
  Serious: Yes (Death, Life-Threatening, Hospitalization)
  Sender: FDA-Public Use
  Company Number: US-ACTELION-A-NJ2018-178587

PATIENT
  Age: 78 Year
  Sex: Female

DRUGS (1)
  1. OPSUMIT [Suspect]
     Active Substance: MACITENTAN
     Indication: PULMONARY ARTERIAL HYPERTENSION
     Dosage: 10 MG, UNK
     Route: 048
     Dates: start: 20180828, end: 201810

REACTIONS (8)
  - Dyspnoea [Fatal]
  - Brain operation [Unknown]
  - Cerebellar haemorrhage [Unknown]
  - Urinary tract infection [Unknown]
  - Adverse event [Unknown]
  - Condition aggravated [Fatal]
  - Lung infection [Fatal]
  - Pulmonary arterial hypertension [Fatal]

NARRATIVE: CASE EVENT DATE: 201810
